FAERS Safety Report 7067794-0 (Version None)
Quarter: 2010Q4

REPORT INFORMATION
  Report Type: 
  Country: None (occurrence: None)
  Receive Date: 20101028
  Receipt Date: 20101007
  Transmission Date: 20110411
  Serious: No
  Sender: FDA-Public Use
  Company Number: A0878667A

PATIENT
  Age: 81 Year
  Sex: Female
  Weight: 65.9 kg

DRUGS (6)
  1. SEREVENT [Suspect]
     Indication: EMPHYSEMA
     Route: 055
     Dates: start: 20100828
  2. SPIRIVA [Concomitant]
  3. AMLODIPINE BESYLATE [Concomitant]
  4. ZOLPIDEM [Concomitant]
  5. ALEVE (CAPLET) [Concomitant]
  6. UNSPECIFIED MEDICATION [Concomitant]

REACTIONS (9)
  - CHAPPED LIPS [None]
  - CHRONIC OBSTRUCTIVE PULMONARY DISEASE [None]
  - DISCOMFORT [None]
  - DIZZINESS [None]
  - LIP EXFOLIATION [None]
  - LIP PAIN [None]
  - LIP SWELLING [None]
  - PRODUCT QUALITY ISSUE [None]
  - TONGUE DISORDER [None]
